FAERS Safety Report 6109922-7 (Version None)
Quarter: 2009Q1

REPORT INFORMATION
  Report Type: 
  Country: None (occurrence: None)
  Receive Date: 20090310
  Receipt Date: 20080825
  Transmission Date: 20090719
  Serious: No
  Sender: FDA-Public Use
  Company Number: A0744176A

PATIENT
  Age: 59 Year
  Sex: Female

DRUGS (3)
  1. NICORETTE [Suspect]
  2. SEROQUEL [Concomitant]
  3. CYMBALTA [Concomitant]

REACTIONS (1)
  - DRUG INEFFECTIVE [None]
